FAERS Safety Report 21203717 (Version 2)
Quarter: 2023Q2

REPORT INFORMATION
  Report Type: Spontaneous
  Country: FR (occurrence: FR)
  Receive Date: 20220811
  Receipt Date: 20230630
  Transmission Date: 20230721
  Serious: Yes (Other)
  Sender: FDA-Public Use
  Company Number: FR-GW PHARMA-2022-FR-026068

PATIENT
  Age: 14 Year
  Sex: Female

DRUGS (2)
  1. CANNABIDIOL [Suspect]
     Active Substance: CANNABIDIOL
     Indication: Lennox-Gastaut syndrome
     Dosage: 290 MILLIGRAM, BID
     Route: 048
     Dates: start: 20220224
  2. VALPROATE SODIUM [Suspect]
     Active Substance: VALPROATE SODIUM
     Indication: Lennox-Gastaut syndrome
     Dosage: 500 MILLIGRAM, BID
     Route: 048

REACTIONS (1)
  - Thrombocytopenia [Not Recovered/Not Resolved]

NARRATIVE: CASE EVENT DATE: 20220401
